FAERS Safety Report 6335100-2 (Version None)
Quarter: 2009Q3

REPORT INFORMATION
  Report Type: 
  Country: None (occurrence: None)
  Receive Date: 20090831
  Receipt Date: 20090820
  Transmission Date: 20100115
  Serious: Yes (Other)
  Sender: FDA-Public Use
  Company Number: CA-AVENTIS-200821865GDDC

PATIENT
  Age: 61 Year
  Sex: Male
  Weight: 67.4 kg

DRUGS (14)
  1. AFLIBERCEPT [Suspect]
     Route: 042
     Dates: start: 20081120, end: 20081120
  2. DOCETAXEL [Suspect]
     Route: 042
     Dates: start: 20081120, end: 20081120
  3. PREDNISONE TAB [Suspect]
     Route: 048
     Dates: start: 20080514, end: 20081212
  4. ENALAPRIL MALEATE [Concomitant]
     Dosage: DOSE: UNK
     Dates: start: 20020101
  5. HYDROCHLORATHIAZIDE [Concomitant]
     Dosage: DOSE: UNK
     Dates: start: 20020101
  6. SLOW-K [Concomitant]
     Dosage: DOSE: UNK
     Dates: start: 20020101
  7. ASPIRIN [Concomitant]
     Dosage: DOSE: UNK
     Dates: start: 20020101
  8. MULTI-VITAMINS [Concomitant]
     Dosage: DOSE: UNK
     Dates: start: 19880101
  9. CLUB SODA RINSES [Concomitant]
     Dosage: DOSE: UNK
     Dates: start: 20080610
  10. ELIGARD [Concomitant]
     Dosage: DOSE: UNK
  11. MYCOSTATIN                         /00036501/ [Concomitant]
     Dosage: DOSE: UNK
     Dates: start: 20080908
  12. PRED FORTE [Concomitant]
     Dosage: DOSE: UNK
     Dates: start: 20081215
  13. TRUSOPT [Concomitant]
     Dosage: DOSE: UNK
     Dates: start: 20081215
  14. COMBIGAN [Concomitant]
     Dosage: DOSE: UNK
     Dates: start: 20081215

REACTIONS (1)
  - PIGMENTARY GLAUCOMA [None]
